FAERS Safety Report 13783557 (Version 2)
Quarter: 2020Q3

REPORT INFORMATION
  Report Type: Report from Study
  Country: CA (occurrence: CA)
  Receive Date: 20170724
  Receipt Date: 20170818
  Transmission Date: 20201105
  Serious: Yes (Hospitalization)
  Sender: FDA-Public Use
  Company Number: CA-ASTRAZENECA-2017SE74998

PATIENT
  Age: 76 Year
  Sex: Female

DRUGS (4)
  1. TUSSIONEX [HYDROCODONE\PHENYLTOLOXAMINE] [Concomitant]
     Active Substance: HYDROCODONE\PHENYLTOLOXAMINE
     Indication: COUGH
     Route: 065
     Dates: start: 20170305
  2. BENADRYL [Concomitant]
     Active Substance: DIPHENHYDRAMINE HYDROCHLORIDE
     Indication: COUGH
     Route: 065
     Dates: start: 20170320
  3. TREMELIMUMAB. [Suspect]
     Active Substance: TREMELIMUMAB
     Indication: COLORECTAL CANCER
     Route: 042
     Dates: start: 20170629
  4. DURVALUMAB. [Suspect]
     Active Substance: DURVALUMAB
     Indication: COLORECTAL CANCER
     Route: 042
     Dates: start: 20170629

REACTIONS (2)
  - Rhabdomyolysis [Recovered/Resolved]
  - Troponin T increased [Not Recovered/Not Resolved]

NARRATIVE: CASE EVENT DATE: 20170718
